FAERS Safety Report 6189537-5 (Version None)
Quarter: 2009Q2

REPORT INFORMATION
  Report Type: 
  Country: None (occurrence: None)
  Receive Date: 20090514
  Receipt Date: 20090508
  Transmission Date: 20091009
  Serious: Yes (Hospitalization)
  Sender: FDA-Public Use
  Company Number: US-BIOGENIDEC-2009BI010444

PATIENT
  Age: 54 Year
  Sex: Female

DRUGS (3)
  1. TYSABRI [Suspect]
     Indication: MULTIPLE SCLEROSIS
     Route: 042
     Dates: start: 20070718, end: 20081210
  2. TYSABRI [Suspect]
     Route: 042
     Dates: start: 20070718, end: 20081210
  3. TYSABRI [Suspect]
     Route: 042
     Dates: start: 20070718, end: 20081210

REACTIONS (1)
  - OVARIAN CANCER [None]
